FAERS Safety Report 9554199 (Version 1)
Quarter: 2013Q3

REPORT INFORMATION
  Report Type: Report from Study
  Country: AR (occurrence: AR)
  Receive Date: 20130925
  Receipt Date: 20130925
  Transmission Date: 20140515
  Serious: Yes (Other)
  Sender: FDA-Public Use
  Company Number: PHHY2013AR106791

PATIENT
  Sex: Female

DRUGS (1)
  1. EXFORGE [Suspect]
     Indication: BLOOD PRESSURE MANAGEMENT
     Dosage: 1 DF, (160/5 MG) PER DAY
     Route: 048
     Dates: start: 2003

REACTIONS (1)
  - Diabetes mellitus [Recovered/Resolved]
